FAERS Safety Report 7957367-7 (Version None)
Quarter: 2011Q4

REPORT INFORMATION
  Report Type: 
  Country: None (occurrence: None)
  Receive Date: 20111205
  Receipt Date: 20111201
  Transmission Date: 20120403
  Serious: Yes (Death, Other)
  Sender: FDA-Public Use
  Company Number: PHHY2011GB14136

PATIENT
  Age: 68 Year
  Sex: Male

DRUGS (6)
  1. FINASTERIDE [Concomitant]
  2. ENOXAPARIN SODIUM [Concomitant]
     Dosage: 40 MG, QD
     Dates: end: 20100902
  3. MORPHINE SULFATE [Concomitant]
  4. LENALIDOMIDE [Suspect]
     Indication: MYELOMA RECURRENCE
     Dosage: 25 MG, QD
     Route: 048
     Dates: start: 20091001, end: 20100902
  5. DEXAMETHASONE [Concomitant]
     Dosage: 20 MG, QW
  6. GABAPENTIN [Suspect]
     Indication: NEURALGIA
     Dosage: 600 MG, TID
     Route: 048
     Dates: start: 20070701, end: 20110210

REACTIONS (5)
  - PETECHIAE [None]
  - ACUTE MYELOID LEUKAEMIA [None]
  - MYELODYSPLASTIC SYNDROME [None]
  - HAEMORRHAGE [None]
  - THROMBOCYTOPENIA [None]
